FAERS Safety Report 7206753-1 (Version None)
Quarter: 2010Q4

REPORT INFORMATION
  Report Type: 
  Country: None (occurrence: None)
  Receive Date: 20101217
  Receipt Date: 20101201
  Transmission Date: 20110411
  Serious: Yes (Other)
  Sender: FDA-Public Use
  Company Number: 1000017646

PATIENT
  Age: 19 Year
  Sex: Male

DRUGS (3)
  1. ESCITALOPRAM [Suspect]
     Dosage: 10 MG ONCE, ORAL
     Route: 048
     Dates: start: 20101201, end: 20101201
  2. FLUOXETINE [Suspect]
     Dosage: 1 DOSAGE FORMS, ONCE, ORAL
     Route: 048
     Dates: start: 20101201, end: 20101201
  3. ALCOHOL (ETHANOL) [Suspect]
     Dosage: ORAL
     Route: 048
     Dates: start: 20101201, end: 20101201

REACTIONS (3)
  - ALCOHOL POISONING [None]
  - ALCOHOL USE [None]
  - DRUG ABUSE [None]
